FAERS Safety Report 24085641 (Version 1)
Quarter: 2024Q3

REPORT INFORMATION
  Report Type: Spontaneous
  Country: EE (occurrence: EE)
  Receive Date: 20240712
  Receipt Date: 20240712
  Transmission Date: 20241017
  Serious: Yes (Life-Threatening)
  Sender: B BRAUN
  Company Number: EE-B.Braun Medical Inc.-2159083

PATIENT
  Age: 85 Year
  Sex: Female
  Weight: 87 kg

DRUGS (1)
  1. ACETAMINOPHEN [Suspect]
     Active Substance: ACETAMINOPHEN

REACTIONS (2)
  - Renal impairment [Recovering/Resolving]
  - Coma [Recovering/Resolving]
